FAERS Safety Report 16234588 (Version 1)
Quarter: 2019Q2

REPORT INFORMATION
  Report Type: Spontaneous
  Country: ES (occurrence: ES)
  Receive Date: 20190424
  Receipt Date: 20190424
  Transmission Date: 20190711
  Serious: Yes (Hospitalization)
  Sender: FDA-Public Use
  Company Number: ES-MYLANLABS-2019M1037128

PATIENT
  Age: 79 Year
  Sex: Female

DRUGS (12)
  1. SINGULAIR [Concomitant]
     Active Substance: MONTELUKAST SODIUM
     Indication: BRONCHITIS CHRONIC
     Dosage: 1 DOSAGE FORM, QD
     Route: 048
     Dates: start: 20080521
  2. ESPIRONOLACTONA [Suspect]
     Active Substance: SPIRONOLACTONE
     Indication: ASCITES
     Dosage: 100 MILLIGRAM, QD
     Route: 048
     Dates: start: 20180602, end: 20180716
  3. CLOMETIAZOL [Concomitant]
     Active Substance: CLOMETHIAZOLE
     Indication: PERSISTENT DEPRESSIVE DISORDER
     Dosage: 2 DOSAGE FORM, BID
     Route: 048
     Dates: start: 20180712
  4. TRAMADOL/PARACETAMOL [Concomitant]
     Active Substance: ACETAMINOPHEN\TRAMADOL
     Indication: BACK PAIN
     Dosage: 1 DOSAGE FORM, Q8H
     Route: 048
     Dates: start: 20170510
  5. INALADUO [Concomitant]
     Active Substance: FLUTICASONE PROPIONATE\SALMETEROL XINAFOATE
     Indication: BRONCHITIS CHRONIC
     Dosage: 1 DOSAGE FORM, BID
     Route: 055
     Dates: start: 20080521
  6. MASTICAL D [Concomitant]
     Indication: PATHOLOGICAL FRACTURE
     Dosage: 1 DOSAGE FORM, QD
     Route: 048
     Dates: start: 20170515
  7. AMOROLFINA                         /01202401/ [Concomitant]
     Indication: HEPATIC CIRRHOSIS
     Dosage: 1 DOSAGE FORM, Q8H
     Route: 048
     Dates: start: 20180712
  8. FUROSEMIDE. [Suspect]
     Active Substance: FUROSEMIDE
     Indication: ASCITES
     Dosage: UNK
     Route: 048
     Dates: end: 20180717
  9. PROPRANOLOL [Concomitant]
     Active Substance: PROPRANOLOL HYDROCHLORIDE
     Indication: PORTAL HYPERTENSION
     Dosage: 1 DOSAGE FORM, BID
     Route: 048
     Dates: start: 20180626
  10. OMEPRAZOL STADA [Concomitant]
     Active Substance: OMEPRAZOLE
     Indication: OSTEOARTHRITIS
     Dosage: 1 DOSAGE FORM, BID
     Route: 048
     Dates: start: 20080522
  11. EUTIROX [Concomitant]
     Active Substance: LEVOTHYROXINE SODIUM
     Indication: HYPOTHYROIDISM
     Dosage: 1 DOSAGE FORM, QD
     Route: 048
     Dates: start: 20160708
  12. SALBUTAMOL [Concomitant]
     Active Substance: ALBUTEROL
     Indication: ASTHMA
     Dosage: 1 DOSAGE FORM, QD
     Route: 055
     Dates: start: 20080521

REACTIONS (3)
  - Renal impairment [Recovered/Resolved]
  - Anaemia [Recovered/Resolved]
  - Blood creatinine increased [Recovered/Resolved]

NARRATIVE: CASE EVENT DATE: 20180717
